FAERS Safety Report 19379004 (Version 1)
Quarter: 2021Q2

REPORT INFORMATION
  Report Type: Spontaneous
  Country: US (occurrence: US)
  Receive Date: 20210606
  Receipt Date: 20210606
  Transmission Date: 20210717
  Serious: No
  Sender: FDA-Public Use
  Company Number: US-DRREDDYS-USA/USA/21/0136338

PATIENT
  Age: 31 Year
  Sex: Female

DRUGS (1)
  1. ZENATANE [Suspect]
     Active Substance: ISOTRETINOIN
     Indication: PRODUCT USED FOR UNKNOWN INDICATION
     Dosage: RMA ISSUE DATE: 07/APRIL/2021 5:05:27 PM , 05/MAY/2021  3:15:14 PM .

REACTIONS (2)
  - Rash [Unknown]
  - Adverse drug reaction [Unknown]
